FAERS Safety Report 9787788 (Version 1)
Quarter: 2013Q4

REPORT INFORMATION
  Report Type: Spontaneous
  Country: US (occurrence: US)
  Receive Date: 20131230
  Receipt Date: 20131230
  Transmission Date: 20140711
  Serious: No
  Sender: FDA-Public Use
  Company Number: US-PFIZER INC-2013372431

PATIENT
  Age: 62 Year
  Sex: Male
  Weight: 99.77 kg

DRUGS (5)
  1. LYRICA [Suspect]
     Indication: NEUROPATHY PERIPHERAL
     Dosage: 150 MG, 3X/DAY
     Dates: start: 2012, end: 20131225
  2. METOPROLOL [Concomitant]
     Indication: HYPERTENSION
     Dosage: 25 MG, 2X/DAY
  3. AMLODIPINE [Concomitant]
     Indication: HYPERTENSION
     Dosage: UNK, 1X/DAY
  4. METFORMIN [Concomitant]
     Indication: DIABETES MELLITUS
     Dosage: 500 MG, 2X/DAY
  5. BENICAR HCT [Concomitant]
     Dosage: OLMESARTAN MEDOXOMIL 40 MG/ HYDROCHLOROTHIAZIDE 12.5 MG, 1X/DAY
     Dates: start: 2006

REACTIONS (1)
  - Pain [Unknown]
